FAERS Safety Report 22060553 (Version 1)
Quarter: 2023Q1

REPORT INFORMATION
  Report Type: Spontaneous
  Country: US (occurrence: None)
  Receive Date: 20230303
  Receipt Date: 20230303
  Transmission Date: 20230417
  Serious: No
  Sender: FDA-Public Use
  Company Number: None

PATIENT
  Age: 39 Year
  Sex: Female
  Weight: 77.4 kg

DRUGS (3)
  1. EMGALITY [Suspect]
     Active Substance: GALCANEZUMAB-GNLM
     Dosage: OTHER FREQUENCY : ONCE A MONTH;?
     Route: 058
     Dates: start: 20211117
  2. Olanzapine 5 mg Daily for Breakthrough Migraines [Concomitant]
  3. Excedrin Migraine as needed [Concomitant]

REACTIONS (5)
  - Fatigue [None]
  - Headache [None]
  - Hypersomnia [None]
  - Nausea [None]
  - Head discomfort [None]

NARRATIVE: CASE EVENT DATE: 20230227
